FAERS Safety Report 25342330 (Version 2)
Quarter: 2025Q2

REPORT INFORMATION
  Report Type: Spontaneous
  Country: CH (occurrence: CH)
  Receive Date: 20250521
  Receipt Date: 20250603
  Transmission Date: 20250717
  Serious: Yes (Hospitalization, Other)
  Sender: AMERICAN REGENT
  Company Number: CH-AMERICAN REGENT INC-2025002110

PATIENT
  Age: 51 Year
  Sex: Female

DRUGS (1)
  1. FERINJECT [Suspect]
     Active Substance: FERRIC CARBOXYMALTOSE
     Indication: Product used for unknown indication
     Dates: start: 20250209, end: 20250209

REACTIONS (15)
  - Pain [Recovered/Resolved]
  - Tremor [Not Recovered/Not Resolved]
  - Muscle rigidity [Not Recovered/Not Resolved]
  - Dysphagia [Not Recovered/Not Resolved]
  - Neuralgia [Not Recovered/Not Resolved]
  - Limb discomfort [Not Recovered/Not Resolved]
  - Muscle tightness [Not Recovered/Not Resolved]
  - Fine motor skill dysfunction [Unknown]
  - Grip strength decreased [Unknown]
  - Hypoacusis [Unknown]
  - Pyramidal tract syndrome [Unknown]
  - Quadriparesis [Unknown]
  - Paraesthesia [Recovered/Resolved]
  - Head discomfort [Unknown]
  - Hypophosphataemia [Unknown]

NARRATIVE: CASE EVENT DATE: 20250101
